FAERS Safety Report 8915586 (Version 1)
Quarter: 2012Q4

REPORT INFORMATION
  Report Type: 
  Country: DE (occurrence: DE)
  Receive Date: 20121119
  Receipt Date: 20121119
  Transmission Date: 20130627
  Serious: Yes (Other)
  Sender: FDA-Public Use
  Company Number: DE-JNJFOC-20121106373

PATIENT
  Age: 16 Year
  Sex: Male

DRUGS (4)
  1. REMICADE [Suspect]
     Indication: CROHN^S DISEASE
     Route: 042
     Dates: start: 20121030, end: 20121030
  2. METRONIDAZOLE [Suspect]
     Indication: CROHN^S DISEASE
     Route: 042
     Dates: start: 20121018, end: 20121107
  3. AZULFIDINE [Suspect]
     Indication: CROHN^S DISEASE
     Route: 048
     Dates: start: 2012
  4. DECORTIN H [Suspect]
     Indication: CROHN^S DISEASE
     Route: 042
     Dates: start: 2012

REACTIONS (1)
  - Pancreatitis [Recovered/Resolved]
